FAERS Safety Report 24362115 (Version 1)
Quarter: 2024Q3

REPORT INFORMATION
  Report Type: Spontaneous
  Country: US (occurrence: None)
  Receive Date: 20240924
  Receipt Date: 20240924
  Transmission Date: 20241017
  Serious: Yes (Other)
  Sender: Public
  Company Number: None

PATIENT
  Age: 45 Year
  Sex: Female
  Weight: 74.25 kg

DRUGS (4)
  1. TIZANIDINE HYDROCHLORIDE [Suspect]
     Active Substance: TIZANIDINE HYDROCHLORIDE
     Dosage: 1 TABLET EVERY 4 HOURS ORAL
     Route: 048
     Dates: start: 20240923, end: 20240924
  2. HYDROXYCHLOROQUINE [Concomitant]
  3. MELOXICAM [Concomitant]
  4. Multivitamin [Concomitant]

REACTIONS (4)
  - Somnolence [None]
  - Asthenia [None]
  - Fatigue [None]
  - Thirst [None]

NARRATIVE: CASE EVENT DATE: 20240924
